FAERS Safety Report 6301095-0 (Version None)
Quarter: 2009Q3

REPORT INFORMATION
  Report Type: 
  Country: None (occurrence: None)
  Receive Date: 20090807
  Receipt Date: 20090727
  Transmission Date: 20100115
  Serious: Yes (Other)
  Sender: FDA-Public Use
  Company Number: PHHY2009JP26931

PATIENT
  Age: 36 Year
  Sex: Male

DRUGS (6)
  1. ZADITEN [Suspect]
     Indication: RHINORRHOEA
     Dosage: 2 MG DAILY
     Route: 048
  2. ZADITEN [Suspect]
     Indication: COUGH
  3. LENDORMIN [Concomitant]
  4. SOLANAX [Concomitant]
  5. BISOLVON [Concomitant]
  6. BERIZYM [Concomitant]

REACTIONS (1)
  - HAEMATURIA [None]
